FAERS Safety Report 18511923 (Version 10)
Quarter: 2025Q4

REPORT INFORMATION
  Report Type: Report from Study
  Country: CO (occurrence: CO)
  Receive Date: 20201117
  Receipt Date: 20251111
  Transmission Date: 20260118
  Serious: Yes (Other)
  Sender: TAKEDA
  Company Number: CO-TAKEDA-2020TUS049681

PATIENT
  Age: 64 Year
  Sex: Female
  Weight: 52 kg

DRUGS (2)
  1. VEDOLIZUMAB [Suspect]
     Active Substance: VEDOLIZUMAB
     Indication: Crohn^s disease
     Dosage: 300 MILLIGRAM, Q4WEEKS
     Dates: start: 20191022
  2. VEDOLIZUMAB [Suspect]
     Active Substance: VEDOLIZUMAB
     Dosage: 300 MILLIGRAM

REACTIONS (12)
  - COVID-19 [Unknown]
  - Diarrhoea [Recovered/Resolved]
  - Inappropriate schedule of product administration [Unknown]
  - Weight decreased [Unknown]
  - Product availability issue [Unknown]
  - Abdominal pain [Recovered/Resolved]
  - Decreased appetite [Recovered/Resolved]
  - Malaise [Recovering/Resolving]
  - Asthenia [Recovering/Resolving]
  - Vomiting [Recovered/Resolved]
  - Constipation [Unknown]
  - Pyrexia [Recovered/Resolved]

NARRATIVE: CASE EVENT DATE: 20201022
